FAERS Safety Report 25526665 (Version 1)
Quarter: 2025Q3

REPORT INFORMATION
  Report Type: Spontaneous
  Country: CN (occurrence: CN)
  Receive Date: 20250707
  Receipt Date: 20250707
  Transmission Date: 20251021
  Serious: Yes (Hospitalization)
  Sender: PFIZER
  Company Number: CN-PFIZER INC-PV202500079497

PATIENT
  Age: 48 Year
  Sex: Male

DRUGS (4)
  1. METHOTREXATE SODIUM [Suspect]
     Active Substance: METHOTREXATE SODIUM
     Indication: Diffuse large B-cell lymphoma
     Dosage: 6 G, 1X/DAY
     Route: 041
     Dates: start: 20250620, end: 20250620
  2. ZANUBRUTINIB [Concomitant]
     Active Substance: ZANUBRUTINIB
     Indication: Diffuse large B-cell lymphoma
     Dosage: 160 MG, 2X/DAY
     Route: 048
     Dates: start: 20250620, end: 20250629
  3. ZUBERITAMAB [Concomitant]
     Active Substance: ZUBERITAMAB
     Indication: Diffuse large B-cell lymphoma
     Dosage: 700 MG, 1X/DAY
     Route: 041
     Dates: start: 20250619, end: 20250619
  4. PANTOPRAZOLE [Concomitant]
     Active Substance: PANTOPRAZOLE
     Indication: Prophylaxis
     Dosage: 80 MG, 1X/DAY
     Route: 041
     Dates: start: 20250620, end: 20250629

REACTIONS (2)
  - Blood creatinine increased [Not Recovered/Not Resolved]
  - Blood urea increased [Not Recovered/Not Resolved]

NARRATIVE: CASE EVENT DATE: 20250620
